FAERS Safety Report 6008226-0 (Version None)
Quarter: 2008Q4

REPORT INFORMATION
  Report Type: 
  Country: None (occurrence: None)
  Receive Date: 20081217
  Receipt Date: 20080805
  Transmission Date: 20090506
  Serious: No
  Sender: FDA-Public Use
  Company Number: US-ASTRAZENECA-2008UW15664

PATIENT
  Sex: Female

DRUGS (11)
  1. CRESTOR [Suspect]
     Indication: BLOOD CHOLESTEROL INCREASED
     Route: 048
  2. LISINOPRIL [Concomitant]
     Route: 048
  3. SPIRALACTONE [Concomitant]
  4. MULTI-VITAMIN [Concomitant]
  5. ASPIRIN [Concomitant]
  6. DOCUSATE SODIUM [Concomitant]
  7. TRAVETAN [Concomitant]
  8. TRAZEDONE [Concomitant]
  9. TOPROL-XL [Concomitant]
     Route: 048
  10. GLUCOSAMINE [Concomitant]
  11. CALCIUM [Concomitant]

REACTIONS (1)
  - VISUAL ACUITY REDUCED [None]
